FAERS Safety Report 6057034-3 (Version None)
Quarter: 2009Q1

REPORT INFORMATION
  Report Type: 
  Country: None (occurrence: None)
  Receive Date: 20090126
  Receipt Date: 20090107
  Transmission Date: 20090719
  Serious: Yes (Death)
  Sender: FDA-Public Use
  Company Number: B0553769A

PATIENT
  Age: 65 Year
  Sex: Male

DRUGS (8)
  1. TRANYLCYPROMINE SULFATE [Suspect]
     Dosage: UNK/UNK/ORAL
     Route: 048
  2. AMPHETAMINE (FORMULATION UNKNOWN) (AMPHETAMINE) [Suspect]
  3. CARBON MONOXIDE (FORMULATION UNKNOWN) (CARBON MONOXIDE) [Suspect]
  4. METHYLPHENIDATE HCL [Suspect]
  5. MODAFINIL [Suspect]
  6. ACETAMINOPHEN W/ CODEINE [Suspect]
  7. ZOLPIDEM TARTRATE [Suspect]
  8. TIAGABINE HCL [Suspect]

REACTIONS (2)
  - BLOOD CARBON MONOXIDE INCREASED [None]
  - COMPLETED SUICIDE [None]
